FAERS Safety Report 8267086-8 (Version None)
Quarter: 2012Q2

REPORT INFORMATION
  Report Type: 
  Country: None (occurrence: None)
  Receive Date: 20120409
  Receipt Date: 20120328
  Transmission Date: 20120825
  Serious: Yes (Hospitalization, Other)
  Sender: FDA-Public Use
  Company Number: US-ELI_LILLY_AND_COMPANY-US201203008916

PATIENT
  Sex: Female

DRUGS (3)
  1. GLIPIZIDE [Concomitant]
     Indication: DIABETES MELLITUS
  2. CRESTOR [Concomitant]
  3. EVISTA [Suspect]
     Indication: OSTEOPOROSIS
     Dosage: 60 MG, QD
     Dates: start: 20000510, end: 20110501

REACTIONS (6)
  - BLOOD GLUCOSE DECREASED [None]
  - BLOOD PRESSURE INCREASED [None]
  - TREMOR [None]
  - ENDOMETRIAL CANCER [None]
  - WEIGHT DECREASED [None]
  - VAGINAL HAEMORRHAGE [None]
